FAERS Safety Report 6204025-5 (Version None)
Quarter: 2009Q2

REPORT INFORMATION
  Report Type: 
  Country: None (occurrence: None)
  Receive Date: 20090518
  Receipt Date: 20090212
  Transmission Date: 20091009
  Serious: No
  Sender: FDA-Public Use
  Company Number: WAES 0902USA02270

PATIENT
  Age: 59 Year
  Sex: Female
  Weight: 80.2867 kg

DRUGS (4)
  1. JANUVIA [Suspect]
     Indication: TYPE 2 DIABETES MELLITUS
     Dosage: 100 MG/DAILY/PO
     Route: 048
     Dates: start: 20081008, end: 20081010
  2. PRAVACHOL [Concomitant]
  3. GLIMEPIRIDE [Concomitant]
  4. METFORMIN HYDROCHLORIDE [Concomitant]

REACTIONS (1)
  - CHEILITIS [None]
